FAERS Safety Report 15626720 (Version 3)
Quarter: 2018Q4

REPORT INFORMATION
  Report Type: Spontaneous
  Country: US (occurrence: US)
  Receive Date: 20181116
  Receipt Date: 20181130
  Transmission Date: 20190205
  Serious: Yes (Hospitalization)
  Sender: FDA-Public Use
  Company Number: US-TEVA-2018-US-974105

PATIENT
  Age: 55 Year
  Sex: Male
  Weight: 90.8 kg

DRUGS (2)
  1. CLONAZEPAM. [Suspect]
     Active Substance: CLONAZEPAM
     Dosage: 1 MILLIGRAM DAILY; 1 DOSAGE
     Route: 048
     Dates: start: 2001
  2. CLONAZEPAM. [Suspect]
     Active Substance: CLONAZEPAM
     Indication: PANIC ATTACK
     Route: 048
     Dates: start: 201809

REACTIONS (4)
  - Hyperhidrosis [Unknown]
  - Panic attack [Recovering/Resolving]
  - Withdrawal syndrome [Unknown]
  - Chills [Unknown]

NARRATIVE: CASE EVENT DATE: 201809
